FAERS Safety Report 4387670-1 (Version None)
Quarter: 2004Q2

REPORT INFORMATION
  Report Type: 
  Country: None (occurrence: None)
  Receive Date: 20040623
  Receipt Date: 20040607
  Transmission Date: 20050107
  Serious: Yes (Hospitalization)
  Sender: FDA-Public Use
  Company Number: US_0405102922

PATIENT
  Age: 73 Year
  Sex: Male
  Weight: 73 kg

DRUGS (18)
  1. GEMCITABINE HYDROCHLORIDE-IV (GEMCITABINE) [Suspect]
     Indication: NON-SMALL CELL LUNG CANCER
     Dosage: 2000 MG
     Dates: start: 20040224
  2. PACLITAXEL [Suspect]
     Indication: NON-SMALL CELL LUNG CANCER
     Dosage: 400 MG
     Dates: start: 20040224
  3. PERCOCET [Concomitant]
  4. LISINOPRIL [Concomitant]
  5. AMLODIPINE [Concomitant]
  6. NEXIUM [Concomitant]
  7. PIROXICAM [Concomitant]
  8. PROCHLORPERAZINE [Concomitant]
  9. ALLOPURINOL [Concomitant]
  10. GALENIC / DOCUSATE/SENNA/ [Concomitant]
  11. PROCRIT (ERYTHROPOIETIN) [Concomitant]
  12. FELODIPINE [Concomitant]
  13. LASIX [Concomitant]
  14. BRIMONIDINE TARTRATE [Concomitant]
  15. FENTANYL [Concomitant]
  16. BACLOFEN [Concomitant]
  17. ULTRAM [Concomitant]
  18. REGLAN [Concomitant]

REACTIONS (26)
  - ABDOMINAL PAIN UPPER [None]
  - ANAEMIA [None]
  - ARTHRALGIA [None]
  - ASTHENIA [None]
  - BLOOD CREATININE INCREASED [None]
  - BLOOD UREA INCREASED [None]
  - BUNDLE BRANCH BLOCK RIGHT [None]
  - CELLULITIS [None]
  - CHEST PAIN [None]
  - DECUBITUS ULCER [None]
  - DEHYDRATION [None]
  - FALL [None]
  - FOLLICULITIS [None]
  - GASTRIC ULCER [None]
  - HAEMATEMESIS [None]
  - HAEMORRHOIDS [None]
  - HICCUPS [None]
  - MYOCARDIAL ISCHAEMIA [None]
  - OEDEMA [None]
  - OESOPHAGITIS ULCERATIVE [None]
  - PLATELET COUNT INCREASED [None]
  - RASH [None]
  - REFUSAL OF TREATMENT BY PATIENT [None]
  - TROPONIN INCREASED [None]
  - URINARY TRACT INFECTION [None]
  - URINE OUTPUT DECREASED [None]
